FAERS Safety Report 25529275 (Version 1)
Quarter: 2025Q3

REPORT INFORMATION
  Report Type: Other
  Country: TN (occurrence: TN)
  Receive Date: 20250708
  Receipt Date: 20250708
  Transmission Date: 20251021
  Serious: Yes (Death)
  Sender: ANI
  Company Number: TN-ANIPHARMA-023459

PATIENT

DRUGS (1)
  1. PROPRANOLOL [Suspect]
     Active Substance: PROPRANOLOL HYDROCHLORIDE
     Indication: Hypertrophic cardiomyopathy

REACTIONS (1)
  - Drug ineffective [Fatal]
